FAERS Safety Report 12870592 (Version 1)
Quarter: 2016Q4

REPORT INFORMATION
  Report Type: Spontaneous
  Country: CH (occurrence: CH)
  Receive Date: 20161021
  Receipt Date: 20161021
  Transmission Date: 20170207
  Serious: Yes (Hospitalization)
  Sender: FDA-Public Use
  Company Number: CH-PFIZER INC-2016487913

PATIENT
  Age: 16 Year
  Sex: Male

DRUGS (10)
  1. TEMESTA [Suspect]
     Active Substance: LORAZEPAM
     Dosage: 2.5 MG, 1X/DAY
     Route: 048
     Dates: start: 20160526, end: 20160526
  2. PSYCHOPAX [Concomitant]
     Active Substance: DIAZEPAM
     Dosage: 20 MG, 1X/DAY
     Route: 048
     Dates: start: 20160528, end: 20160528
  3. CLOPIXOL ACUTARD [Suspect]
     Active Substance: ZUCLOPENTHIXOL ACETATE
     Indication: AGITATION
     Dosage: 60 MG, SINGLE
     Route: 030
     Dates: start: 20160526, end: 20160526
  4. CLOPIXOL ACUTARD [Suspect]
     Active Substance: ZUCLOPENTHIXOL ACETATE
     Indication: AGGRESSION
  5. CLOPIXOL [Suspect]
     Active Substance: ZUCLOPENTHIXOL ACETATE
     Dosage: 20 MG, SINGLE
     Route: 048
     Dates: start: 20160527, end: 20160527
  6. TRUXAL [Suspect]
     Active Substance: CHLORPROTHIXENE
     Route: 048
     Dates: start: 20160526, end: 20160526
  7. TEMESTA [Suspect]
     Active Substance: LORAZEPAM
     Dosage: 2 MG, 1X/DAY
     Route: 048
     Dates: start: 20160525, end: 20160525
  8. PSYCHOPAX [Concomitant]
     Active Substance: DIAZEPAM
     Route: 048
     Dates: start: 20160527, end: 20160527
  9. CLEXANE [Concomitant]
     Active Substance: ENOXAPARIN SODIUM
     Dates: start: 20160527, end: 20160527
  10. VALIUM [Concomitant]
     Active Substance: DIAZEPAM
     Dates: start: 20160526, end: 20160526

REACTIONS (5)
  - Tongue spasm [Recovered/Resolved]
  - Trismus [Recovered/Resolved]
  - Extrapyramidal disorder [Recovered/Resolved]
  - Dyskinesia [Recovered/Resolved]
  - Musculoskeletal stiffness [Recovered/Resolved]

NARRATIVE: CASE EVENT DATE: 20160528
